FAERS Safety Report 25953991 (Version 2)
Quarter: 2025Q4

REPORT INFORMATION
  Report Type: Spontaneous
  Country: EG (occurrence: EG)
  Receive Date: 20251023
  Receipt Date: 20251103
  Transmission Date: 20260117
  Serious: Yes (Congenital Anomaly, Other)
  Sender: NOVO NORDISK
  Company Number: EG-NOVOPROD-1542541

PATIENT

DRUGS (2)
  1. NOVORAPID [Suspect]
     Active Substance: INSULIN ASPART
     Indication: Type 1 diabetes mellitus
     Dosage: MAYBE 8 U OR 12 U OR 13 U OR 15 U
     Route: 064
  2. TRESIBA [Suspect]
     Active Substance: INSULIN DEGLUDEC
     Indication: Type 1 diabetes mellitus
     Dosage: 20 IU, QD
     Route: 064

REACTIONS (2)
  - Ventricular septal defect [Unknown]
  - Foetal exposure during pregnancy [Recovered/Resolved]
